FAERS Safety Report 9784779 (Version 1)
Quarter: 2013Q4

REPORT INFORMATION
  Report Type: Spontaneous
  Country: US (occurrence: US)
  Receive Date: 20131227
  Receipt Date: 20131227
  Transmission Date: 20140711
  Serious: No
  Sender: FDA-Public Use
  Company Number: US-009507513-1312USA010765

PATIENT
  Sex: Female

DRUGS (9)
  1. DULERA [Suspect]
     Indication: ASTHMA
     Dosage: TWO PUFFS TWICE DAILY
     Route: 055
     Dates: start: 201012
  2. LEVOTHYROXINE SODIUM [Concomitant]
     Route: 048
  3. PRINIVIL [Concomitant]
     Route: 048
  4. METFORMIN [Concomitant]
  5. PRILOSEC [Concomitant]
     Route: 048
  6. ZOCOR [Concomitant]
     Route: 048
  7. ALBUTEROL [Concomitant]
  8. ASPIRIN [Concomitant]
  9. IBUPROFEN [Concomitant]

REACTIONS (4)
  - Dyspnoea [Not Recovered/Not Resolved]
  - Drug ineffective [Not Recovered/Not Resolved]
  - Drug dose omission [Unknown]
  - Product quality issue [Unknown]
